FAERS Safety Report 7262876-2 (Version None)
Quarter: 2011Q1

REPORT INFORMATION
  Report Type: 
  Country: None (occurrence: None)
  Receive Date: 20110130
  Receipt Date: 20100914
  Transmission Date: 20110831
  Serious: No
  Sender: FDA-Public Use
  Company Number: US-ABBOTT-10P-163-0670926-00

PATIENT
  Age: 17 Year
  Sex: Female

DRUGS (2)
  1. HUMIRA [Suspect]
     Indication: ANKYLOSING SPONDYLITIS
     Dates: start: 20091001
  2. NALFON [Concomitant]
     Indication: PAIN
     Dosage: PRN FOR PAIN

REACTIONS (5)
  - INJECTION SITE INFLAMMATION [None]
  - INJECTION SITE REACTION [None]
  - INJECTION SITE PRURITUS [None]
  - INJECTION SITE WARMTH [None]
  - INJECTION SITE ERYTHEMA [None]
